FAERS Safety Report 8407957-2 (Version None)
Quarter: 2012Q2

REPORT INFORMATION
  Report Type: 
  Country: None (occurrence: None)
  Receive Date: 20120604
  Receipt Date: 20120525
  Transmission Date: 20120825
  Serious: Yes (Hospitalization, Congenital Anomaly, Other)
  Sender: FDA-Public Use
  Company Number: US-PFIZER INC-2012128841

PATIENT
  Sex: Male

DRUGS (3)
  1. ZOLOFT [Suspect]
     Indication: ANXIETY
  2. TRAZODONE [Concomitant]
     Indication: SLEEP DISORDER
     Dosage: UNK
     Route: 064
  3. ZOLOFT [Suspect]
     Indication: DEPRESSION
     Dosage: 50 MG, 1X/DAY IN THE MORNING
     Route: 064
     Dates: start: 20040217

REACTIONS (14)
  - VENTRICULAR SEPTAL DEFECT [None]
  - RIGHT VENTRICULAR HYPERTROPHY [None]
  - DILATATION VENTRICULAR [None]
  - HYPOPLASTIC LEFT HEART SYNDROME [None]
  - MATERNAL EXPOSURE TIMING UNSPECIFIED [None]
  - RIGHT ATRIAL DILATATION [None]
  - TRICUSPID VALVE INCOMPETENCE [None]
  - AORTIC VALVE ATRESIA [None]
  - CONGENITAL AORTIC VALVE STENOSIS [None]
  - ATRIAL SEPTAL DEFECT [None]
  - PATENT DUCTUS ARTERIOSUS [None]
  - AORTA HYPOPLASIA [None]
  - MITRAL VALVE ATRESIA [None]
  - CONGENITAL AORTIC ANOMALY [None]
